FAERS Safety Report 9563658 (Version 1)
Quarter: 2013Q3

REPORT INFORMATION
  Report Type: Spontaneous
  Country: FR (occurrence: None)
  Receive Date: 20130916
  Receipt Date: 20130916
  Transmission Date: 20140515
  Serious: Yes (Other)
  Sender: FDA-Public Use
  Company Number: JPI-P-010717

PATIENT
  Age: 78 Year
  Sex: Female

DRUGS (3)
  1. XYREM (500 MILLIGRAM/ MILLILITERS, SOLUTION) (SODIUM OXYBATE) [Suspect]
     Indication: CATAPLEXY
     Dosage: 4.5 GM (2.25 GM, 2 IN 1 D), ORAL
     Route: 048
     Dates: start: 20100111, end: 20100322
  2. VENLAFAXINE [Concomitant]
  3. PREGABALIN [Concomitant]

REACTIONS (11)
  - Chest pain [None]
  - Blood pressure systolic increased [None]
  - Peripheral coldness [None]
  - Nightmare [None]
  - Muscle spasms [None]
  - Weight decreased [None]
  - Decreased appetite [None]
  - Flushing [None]
  - Hyperaesthesia [None]
  - Feeling cold [None]
  - Back disorder [None]
